FAERS Safety Report 9915618 (Version 1)
Quarter: 2014Q1

REPORT INFORMATION
  Report Type: Spontaneous
  Country: US (occurrence: None)
  Receive Date: 20140219
  Receipt Date: 20140219
  Transmission Date: 20141002
  Serious: Yes (Life-Threatening, Hospitalization, Other)
  Sender: FDA-Public Use
  Company Number: None

PATIENT
  Age: 69 Year
  Sex: Male
  Weight: 70.76 kg

DRUGS (1)
  1. XIAFLEX [Suspect]

REACTIONS (2)
  - Haemorrhage [None]
  - Myocardial infarction [None]
